FAERS Safety Report 5046789-2 (Version None)
Quarter: 2006Q3

REPORT INFORMATION
  Report Type: 
  Country: None (occurrence: None)
  Receive Date: 20060705
  Receipt Date: 20060705
  Transmission Date: 20061208
  Serious: Yes (Other)
  Sender: FDA-Public Use
  Company Number: None

PATIENT
  Sex: Female
  Weight: 7.2576 kg

DRUGS (3)
  1. OMNICEF [Suspect]
     Indication: OTITIS MEDIA
     Dosage: 1/2 TSP Q 12 HRS PO
     Route: 048
     Dates: start: 20060208, end: 20060213
  2. UNITHIST [Concomitant]
  3. XIRAHIST [Concomitant]

REACTIONS (3)
  - FAECES DISCOLOURED [None]
  - HAEMATOCHEZIA [None]
  - UNEVALUABLE EVENT [None]
